FAERS Safety Report 8806255 (Version 1)
Quarter: 2012Q4

REPORT INFORMATION
  Report Type: 
  Country: US (occurrence: US)
  Receive Date: 20120925
  Receipt Date: 20120925
  Transmission Date: 20130627
  Serious: Yes (Other)
  Sender: FDA-Public Use
  Company Number: PHEH2012US016516

PATIENT
  Sex: Male

DRUGS (2)
  1. GLEEVEC [Suspect]
     Indication: GASTROINTESTINAL CARCINOMA
     Dosage: 400 mg, BID
     Route: 048
     Dates: start: 20120510
  2. GLEEVEC [Suspect]
     Dosage: 400 mg, Q12H
     Route: 048
     Dates: start: 20120717

REACTIONS (6)
  - Nephrolithiasis [Unknown]
  - Neoplasm progression [Unknown]
  - Malignant neoplasm progression [Unknown]
  - Gout [Unknown]
  - Contusion [Unknown]
  - Gastrointestinal carcinoma [None]
